FAERS Safety Report 5075052-9 (Version None)
Quarter: 2006Q3

REPORT INFORMATION
  Report Type: 
  Country: None (occurrence: None)
  Receive Date: 20060804
  Receipt Date: 20060712
  Transmission Date: 20061208
  Serious: No
  Sender: FDA-Public Use
  Company Number: 06-0078PE

PATIENT
  Sex: Female

DRUGS (1)
  1. PRENATE ELITE [Suspect]
     Indication: PREGNANCY
     Dosage: 1 TABLET QD, PO  APPROX. 3 YEARS
     Route: 048

REACTIONS (6)
  - ABDOMINAL DISCOMFORT [None]
  - ABDOMINAL DISTENSION [None]
  - ABORTION SPONTANEOUS [None]
  - BREAST PAIN [None]
  - DIARRHOEA [None]
  - DRUG EXPOSURE DURING PREGNANCY [None]
